FAERS Safety Report 7490768-2 (Version None)
Quarter: 2011Q2

REPORT INFORMATION
  Report Type: 
  Country: None (occurrence: None)
  Receive Date: 20110519
  Receipt Date: 20110503
  Transmission Date: 20111010
  Serious: Yes (Death, Other)
  Sender: FDA-Public Use
  Company Number: US-BAYER-2011-006910

PATIENT
  Sex: Female

DRUGS (12)
  1. MANNITOL [Concomitant]
     Dosage: 25 G, UNK
     Dates: start: 20030325, end: 20030325
  2. TRASYLOL [Suspect]
     Indication: CORONARY ARTERY BYPASS
     Dosage: 200 ML, UNK
     Route: 042
     Dates: start: 20030325, end: 20030325
  3. SODIUM BICARBONATE [Concomitant]
     Dosage: 50 MEQ, UNK
     Dates: start: 20031112, end: 20031112
  4. SODIUM BICARBONATE [Concomitant]
     Dosage: 50 MEQ, UNK
     Dates: start: 20030325, end: 20030325
  5. TRASYLOL [Suspect]
     Indication: STERNOTOMY
     Dosage: 280 MG, UNK
     Route: 042
     Dates: start: 20031112, end: 20031112
  6. LIDOCAINE [Concomitant]
     Dosage: 100 MG, UNK
     Dates: start: 20030325, end: 20030325
  7. VASOPRESSIN [Concomitant]
     Dosage: 6 U, UNK
     Dates: start: 20031112, end: 20031112
  8. MANNITOL [Concomitant]
     Dosage: UNK
     Dates: start: 20031112, end: 20031112
  9. MIDAZOLAM HCL [Concomitant]
     Dosage: 5 MG, UNK
     Dates: start: 20031112, end: 20031112
  10. LIDOCAINE [Concomitant]
     Dosage: 100 MG, UNK
     Dates: start: 20031112, end: 20031112
  11. CALCIUM CHLORIDE [Concomitant]
     Dosage: 1 G, UNK
     Dates: start: 20031112, end: 20031112
  12. ALBUMIN (HUMAN) [Concomitant]
     Dosage: 12.5 G, UNK
     Dates: start: 20031112, end: 20031112

REACTIONS (10)
  - EMOTIONAL DISTRESS [None]
  - STRESS [None]
  - RENAL FAILURE [None]
  - PAIN [None]
  - UNEVALUABLE EVENT [None]
  - INJURY [None]
  - ANXIETY [None]
  - RENAL IMPAIRMENT [None]
  - RENAL INJURY [None]
  - FEAR [None]
